FAERS Safety Report 24716544 (Version 1)
Quarter: 2024Q4

REPORT INFORMATION
  Report Type: Spontaneous
  Country: JP (occurrence: JP)
  Receive Date: 20241210
  Receipt Date: 20241210
  Transmission Date: 20250114
  Serious: Yes (Other)
  Sender: ASTELLAS
  Company Number: JP-ASTELLAS-2024-AER-019354

PATIENT
  Age: 8 Decade
  Sex: Male

DRUGS (1)
  1. VYLOY [Suspect]
     Active Substance: ZOLBETUXIMAB-CLZB
     Indication: Gastric cancer
     Route: 065
     Dates: start: 20240920

REACTIONS (5)
  - Thrombosis [Recovering/Resolving]
  - Oedema peripheral [Not Recovered/Not Resolved]
  - Gastritis [Unknown]
  - Hypoalbuminaemia [Recovering/Resolving]
  - Pleural effusion [Not Recovered/Not Resolved]
